FAERS Safety Report 15245434 (Version 1)
Quarter: 2018Q3

REPORT INFORMATION
  Report Type: Spontaneous
  Country: US (occurrence: US)
  Receive Date: 20180713
  Receipt Date: 20180713
  Transmission Date: 20181010
  Serious: No
  Sender: FDA-Public Use
  Company Number: None

PATIENT
  Age: 70 Year
  Sex: Female
  Weight: 88.45 kg

DRUGS (6)
  1. COMBIGAN [Suspect]
     Active Substance: BRIMONIDINE TARTRATE\TIMOLOL MALEATE
     Indication: GLAUCOMA
     Dosage: ?          QUANTITY:1 DF DOSAGE FORM;?
     Route: 031
     Dates: start: 2016
  2. CALCIUM [Concomitant]
     Active Substance: CALCIUM
  3. SUPER?B?COMPLEX [Concomitant]
  4. ATORVASTATIN [Concomitant]
     Active Substance: ATORVASTATIN
  5. TRAVATAN [Concomitant]
     Active Substance: TRAVOPROST
  6. ASPIRIN. [Concomitant]
     Active Substance: ASPIRIN

REACTIONS (4)
  - Eye irritation [None]
  - Eyelid boil [None]
  - Eye pain [None]
  - Eyelid exfoliation [None]
